FAERS Safety Report 19816000 (Version 1)
Quarter: 2021Q3

REPORT INFORMATION
  Report Type: Spontaneous
  Country: JP (occurrence: JP)
  Receive Date: 20210909
  Receipt Date: 20210909
  Transmission Date: 20211014
  Serious: Yes (Other)
  Sender: FDA-Public Use
  Company Number: JP-ROCHE-2904663

PATIENT
  Age: 55 Year
  Sex: Male

DRUGS (2)
  1. OXALIPLATIN. [Concomitant]
     Active Substance: OXALIPLATIN
     Indication: COLON CANCER
     Route: 041
  2. XELODA [Suspect]
     Active Substance: CAPECITABINE
     Indication: COLON CANCER
     Dosage: 6 DOSAGE FORM, BID
     Route: 048

REACTIONS (13)
  - Diarrhoea [Unknown]
  - Pain in extremity [Unknown]
  - Pigmentation disorder [Unknown]
  - Taste disorder [Unknown]
  - Weight decreased [Unknown]
  - Constipation [Unknown]
  - COVID-19 [Unknown]
  - Thermal burn [Unknown]
  - Hypoaesthesia [Unknown]
  - Nail discolouration [Unknown]
  - Skin hypertrophy [Unknown]
  - Palmar-plantar erythrodysaesthesia syndrome [Unknown]
  - Quality of life decreased [Unknown]
